FAERS Safety Report 5304512-8 (Version None)
Quarter: 2007Q2

REPORT INFORMATION
  Report Type: 
  Country: None (occurrence: None)
  Receive Date: 20070423
  Receipt Date: 20070413
  Transmission Date: 20071010
  Serious: Yes (Disabling)
  Sender: FDA-Public Use
  Company Number: US-AMGEN-US218374

PATIENT
  Sex: Female

DRUGS (5)
  1. ETANERCEPT [Suspect]
     Indication: RHEUMATOID ARTHRITIS
     Route: 058
     Dates: start: 20070118, end: 20070329
  2. NAPROSYN [Concomitant]
  3. ALEVE [Concomitant]
  4. PREDNISONE TAB [Concomitant]
  5. PREDNISONE TAB [Concomitant]
     Dates: start: 20070404

REACTIONS (2)
  - ASTHENIA [None]
  - HYPOREFLEXIA [None]
